FAERS Safety Report 14659716 (Version 6)
Quarter: 2019Q2

REPORT INFORMATION
  Report Type: Report from Study
  Country: None (occurrence: NL)
  Receive Date: 20180319
  Receipt Date: 20190510
  Transmission Date: 20190711
  Serious: Yes (Other)
  Sender: FDA-Public Use
  Company Number: NL-ABBVIE-18K-114-2293415-00

PATIENT
  Sex: Male
  Weight: 82 kg

DRUGS (2)
  1. DUODOPA [Suspect]
     Active Substance: CARBIDOPA\LEVODOPA
     Indication: PARKINSON^S DISEASE
     Dosage: MD 12, CD 3.3, ED 3
     Route: 050
     Dates: start: 20180222, end: 2018
  2. DUODOPA [Suspect]
     Active Substance: CARBIDOPA\LEVODOPA
     Dosage: MD 12, CD 3.6, ED 3, 16 HOUR ADMINISTRATION
     Route: 050

REACTIONS (26)
  - Cognitive disorder [Unknown]
  - Partner stress [Not Recovered/Not Resolved]
  - Somnolence [Not Recovered/Not Resolved]
  - Inappropriate schedule of product administration [Recovered/Resolved]
  - Stoma site discharge [Recovered/Resolved]
  - Memory impairment [Not Recovered/Not Resolved]
  - On and off phenomenon [Not Recovered/Not Resolved]
  - Depressed level of consciousness [Not Recovered/Not Resolved]
  - Cognitive disorder [Recovering/Resolving]
  - Dyskinesia [Recovering/Resolving]
  - Abnormal dreams [Not Recovered/Not Resolved]
  - Memory impairment [Unknown]
  - Catheter site dryness [Recovered/Resolved]
  - Therapeutic product effect incomplete [Recovered/Resolved]
  - Bradykinesia [Not Recovered/Not Resolved]
  - Infrequent bowel movements [Recovered/Resolved]
  - Medical device discomfort [Not Recovered/Not Resolved]
  - Fatigue [Not Recovered/Not Resolved]
  - Unevaluable event [Unknown]
  - Muscle rigidity [Not Recovered/Not Resolved]
  - Product administration error [Not Recovered/Not Resolved]
  - Bradykinesia [Not Recovered/Not Resolved]
  - Sleep disorder [Not Recovered/Not Resolved]
  - Pollakiuria [Not Recovered/Not Resolved]
  - Amnesia [Not Recovered/Not Resolved]
  - Stoma site discharge [Recovered/Resolved]

NARRATIVE: CASE EVENT DATE: 2018
